FAERS Safety Report 19609196 (Version 1)
Quarter: 2021Q3

REPORT INFORMATION
  Report Type: Spontaneous
  Country: AU (occurrence: AU)
  Receive Date: 20210726
  Receipt Date: 20210726
  Transmission Date: 20211014
  Serious: Yes (Other)
  Sender: FDA-Public Use
  Company Number: AU-MYLANLABS-2021M1044644

PATIENT
  Sex: Female

DRUGS (1)
  1. CLOZARIL [Suspect]
     Active Substance: CLOZAPINE
     Indication: SCHIZOPHRENIA
     Dosage: 250 MILLIGRAM, PM AT NIGHT
     Route: 048
     Dates: start: 20210630, end: 20210721

REACTIONS (4)
  - C-reactive protein abnormal [Unknown]
  - White blood cell count increased [Unknown]
  - Troponin increased [Unknown]
  - Night sweats [Unknown]
